FAERS Safety Report 7280787-3 (Version None)
Quarter: 2011Q1

REPORT INFORMATION
  Report Type: 
  Country: None (occurrence: None)
  Receive Date: 20110208
  Receipt Date: 20110131
  Transmission Date: 20110831
  Serious: Yes (Hospitalization)
  Sender: FDA-Public Use
  Company Number: GB-BAYER-2011-011743

PATIENT
  Sex: Female

DRUGS (1)
  1. GLUCOBAY [Suspect]
     Dosage: UNK
     Dates: start: 20100901

REACTIONS (1)
  - PANCREATITIS [None]
